FAERS Safety Report 7776857-3 (Version None)
Quarter: 2011Q3

REPORT INFORMATION
  Report Type: 
  Country: None (occurrence: None)
  Receive Date: 20110926
  Receipt Date: 20110914
  Transmission Date: 20111222
  Serious: Yes (Hospitalization)
  Sender: FDA-Public Use
  Company Number: US-CELGENEUS-163-21880-11091916

PATIENT
  Sex: Female

DRUGS (3)
  1. REVLIMID [Suspect]
     Indication: MULTIPLE MYELOMA
     Dosage: 10 MILLIGRAM
     Route: 048
     Dates: start: 20090731
  2. REVLIMID [Suspect]
     Dosage: 5 MILLIGRAM
     Route: 048
     Dates: start: 20100901
  3. CALCIUM CARBONATE [Concomitant]
     Route: 065

REACTIONS (4)
  - HYPERCALCAEMIA [None]
  - FULL BLOOD COUNT DECREASED [None]
  - CONFUSIONAL STATE [None]
  - ASTHENIA [None]
